FAERS Safety Report 25976614 (Version 1)
Quarter: 2025Q4

REPORT INFORMATION
  Report Type: Spontaneous
  Country: US (occurrence: US)
  Receive Date: 20251029
  Receipt Date: 20251029
  Transmission Date: 20260118
  Serious: No
  Sender: MILLICENT HOLDINGS
  Company Number: US-Millicent Holdings Ltd.-MILL20250307

PATIENT
  Age: 64 Year
  Sex: Female

DRUGS (4)
  1. INTRAROSA [Suspect]
     Active Substance: PRASTERONE
     Indication: Atrophic vulvovaginitis
     Route: 067
  2. INTRAROSA [Suspect]
     Active Substance: PRASTERONE
     Indication: Dyspareunia
  3. INTRAROSA [Suspect]
     Active Substance: PRASTERONE
     Indication: Cystitis
  4. LETROZOLE [Concomitant]
     Active Substance: LETROZOLE
     Indication: Endometrial stromal sarcoma

REACTIONS (5)
  - Drug ineffective [Not Recovered/Not Resolved]
  - Dyspareunia [Not Recovered/Not Resolved]
  - Coital bleeding [Not Recovered/Not Resolved]
  - Drug effective for unapproved indication [Not Recovered/Not Resolved]
  - Off label use [Not Recovered/Not Resolved]

NARRATIVE: CASE EVENT DATE: 20220101
